FAERS Safety Report 8589308-6 (Version None)
Quarter: 2012Q3

REPORT INFORMATION
  Report Type: 
  Country: None (occurrence: None)
  Receive Date: 20120731
  Receipt Date: 20120716
  Transmission Date: 20120928
  Serious: Yes (Hospitalization)
  Sender: FDA-Public Use
  Company Number: FR-20120162

PATIENT
  Age: 61 Year
  Sex: Female

DRUGS (6)
  1. VANCOMYCIN [Suspect]
     Indication: ENDOCARDITIS
     Dates: start: 20110713, end: 20110729
  2. NEXIUM [Suspect]
     Indication: ENDOCARDITIS
     Dosage: (40 MG) INTRAVENOUS (NOT OTHERWISE SPECIFIED)
     Route: 042
     Dates: start: 20110703, end: 20110808
  3. HEXABRIX [Suspect]
     Indication: ANGIOGRAM
     Dosage: (1 IN 1 TOTAL) INTRAVENOUS (NOT OTHERWISE SPECIFIED)
     Route: 042
     Dates: start: 20110713, end: 20110713
  4. FLUCONAZOLE [Suspect]
     Indication: ENDOCARDITIS
     Dosage: 2 MG/ML INTRAVENOUS DRIP
     Route: 041
     Dates: start: 20110718, end: 20110729
  5. CLAFORAN [Suspect]
     Indication: ENDOCARDITIS
     Dosage: INTRAVENOUS DRIP
     Route: 041
     Dates: start: 20110703, end: 20110729
  6. CIPROFLOXACIN [Suspect]
     Indication: ENDOCARDITIS
     Dosage: 400 MG/200 ML INTRAVENOUS DRIP
     Route: 041
     Dates: start: 20110718, end: 20110729

REACTIONS (4)
  - SEPTIC SHOCK [None]
  - DRUG RASH WITH EOSINOPHILIA AND SYSTEMIC SYMPTOMS [None]
  - PERICARDIAL EFFUSION [None]
  - HAEMOGLOBIN DECREASED [None]
